FAERS Safety Report 14477537 (Version 1)
Quarter: 2018Q1

REPORT INFORMATION
  Report Type: Report from Study
  Country: US (occurrence: US)
  Receive Date: 20180201
  Receipt Date: 20180201
  Transmission Date: 20180509
  Serious: No
  Sender: FDA-Public Use
  Company Number: US-EXELIXIS-CABO-17010564

PATIENT
  Sex: Male

DRUGS (12)
  1. BUSPIRONE [Concomitant]
     Active Substance: BUSPIRONE HYDROCHLORIDE
  2. PROPECIA [Concomitant]
     Active Substance: FINASTERIDE
  3. NORCO [Concomitant]
     Active Substance: ACETAMINOPHEN\HYDROCODONE BITARTRATE
  4. COMETRIQ [Suspect]
     Active Substance: CABOZANTINIB S-MALATE
     Indication: THYROID CANCER
     Dosage: 100 MG, QD
     Route: 048
     Dates: start: 20141204, end: 201412
  5. BUPROPION. [Concomitant]
     Active Substance: BUPROPION
  6. LISINOPRIL. [Concomitant]
     Active Substance: LISINOPRIL
  7. ZOLPIDEM [Concomitant]
     Active Substance: ZOLPIDEM\ZOLPIDEM TARTRATE
  8. NAPROSYN [Concomitant]
     Active Substance: NAPROXEN
  9. COMETRIQ [Suspect]
     Active Substance: CABOZANTINIB S-MALATE
     Dosage: 60 MG, QD
     Route: 048
     Dates: start: 201702, end: 2017
  10. ZOLOFT [Concomitant]
     Active Substance: SERTRALINE HYDROCHLORIDE
  11. COMETRIQ [Suspect]
     Active Substance: CABOZANTINIB S-MALATE
     Dosage: 60 MG QD, 3 WEEKS ON, 1 WEEK OFF
     Route: 048
     Dates: start: 2017
  12. LEVOTHYROXINE. [Concomitant]
     Active Substance: LEVOTHYROXINE

REACTIONS (4)
  - Weight decreased [Recovering/Resolving]
  - Nausea [Unknown]
  - Oral pain [Not Recovered/Not Resolved]
  - Diarrhoea [Unknown]
